FAERS Safety Report 14498534 (Version 1)
Quarter: 2018Q1

REPORT INFORMATION
  Report Type: Spontaneous
  Country: CA (occurrence: CA)
  Receive Date: 20180207
  Receipt Date: 20180207
  Transmission Date: 20180509
  Serious: Yes (Death)
  Sender: FDA-Public Use
  Company Number: CA-PFIZER INC-2018051942

PATIENT
  Age: 53 Year
  Sex: Female
  Weight: 85 kg

DRUGS (6)
  1. BUPROPION. [Suspect]
     Active Substance: BUPROPION
     Dosage: UNK
  2. DESVENLAFAXINE. [Suspect]
     Active Substance: DESVENLAFAXINE
     Dosage: UNK
  3. ACETAMINOPHEN. [Suspect]
     Active Substance: ACETAMINOPHEN
     Dosage: UNK
  4. CANNABIS [Suspect]
     Active Substance: CANNABIS SATIVA SUBSP. INDICA TOP
     Dosage: UNK
  5. METHYLENEDIOXYMETHAMPHETAMINE [Suspect]
     Active Substance: MIDOMAFETAMINE
     Dosage: UNK
  6. VENLAFAXINE ER [Suspect]
     Active Substance: VENLAFAXINE HYDROCHLORIDE
     Dosage: UNK

REACTIONS (1)
  - Toxicity to various agents [Fatal]
